FAERS Safety Report 4748133-4 (Version None)
Quarter: 2005Q3

REPORT INFORMATION
  Report Type: 
  Country: None (occurrence: None)
  Receive Date: 20050816
  Receipt Date: 20050810
  Transmission Date: 20060218
  Serious: Yes (Hospitalization, Other)
  Sender: FDA-Public Use
  Company Number: 2005105866

PATIENT
  Age: 65 Year
  Sex: Male
  Weight: 90.7194 kg

DRUGS (10)
  1. LIPITOR [Suspect]
     Indication: BLOOD CHOLESTEROL
     Dosage: 20 MG (20 MG, 1 IN 1 D), ORAL
     Route: 048
  2. ARICEPT [Suspect]
     Indication: MEMORY IMPAIRMENT
     Dosage: 10 MG (10 MG, 1 IN 1 D), ORAL
     Route: 048
  3. PLAVIX [Concomitant]
  4. BISOPROLOL (BISOPROLOL) [Concomitant]
  5. LEXAPRO [Concomitant]
  6. ZANTAC [Concomitant]
  7. MEMANTINE HCL [Concomitant]
  8. TAMSULOSIN HCL [Concomitant]
  9. MULTIVITAMIN [Concomitant]
  10. TIZANIDINE HCL [Concomitant]

REACTIONS (16)
  - ABDOMINAL DISTENSION [None]
  - ASTHENIA [None]
  - BLINDNESS TRANSIENT [None]
  - CAROTID ARTERY OCCLUSION [None]
  - CEREBROVASCULAR ACCIDENT [None]
  - DIARRHOEA [None]
  - GASTROINTESTINAL INFECTION [None]
  - GENERAL PHYSICAL HEALTH DETERIORATION [None]
  - IATROGENIC INJURY [None]
  - OPERATIVE HAEMORRHAGE [None]
  - POSTOPERATIVE INFECTION [None]
  - PULMONARY OEDEMA [None]
  - SLEEP APNOEA SYNDROME [None]
  - STAPHYLOCOCCAL INFECTION [None]
  - TRANSIENT ISCHAEMIC ATTACK [None]
  - TREATMENT NONCOMPLIANCE [None]
